FAERS Safety Report 5875870-0 (Version None)
Quarter: 2008Q3

REPORT INFORMATION
  Report Type: 
  Country: None (occurrence: None)
  Receive Date: 20080908
  Receipt Date: 20080825
  Transmission Date: 20090109
  Serious: Yes (Hospitalization)
  Sender: FDA-Public Use
  Company Number: 2008BI022021

PATIENT
  Age: 54 Year
  Sex: Female

DRUGS (11)
  1. TYSABRI [Suspect]
     Indication: MULTIPLE SCLEROSIS
     Dosage: 300 MG; QM; IV
     Route: 042
     Dates: start: 20061106
  2. PAROXETINE HCL [Concomitant]
  3. CLONAZEPAM [Concomitant]
  4. ARTISTA [Concomitant]
  5. SYNTHASTATIN [Concomitant]
  6. NAMENDA [Concomitant]
  7. ARICEPT [Concomitant]
  8. CALCIUM GLUCONATE [Concomitant]
  9. VITAMIN TAB [Concomitant]
  10. NAPROSYN [Concomitant]
  11. AVONEX [Concomitant]

REACTIONS (3)
  - ANXIETY [None]
  - PROGRESSIVE MULTIFOCAL LEUKOENCEPHALOPATHY [None]
  - URINARY TRACT INFECTION [None]
